FAERS Safety Report 5155604-8 (Version None)
Quarter: 2006Q4

REPORT INFORMATION
  Report Type: 
  Country: None (occurrence: None)
  Receive Date: 20061114
  Receipt Date: 20061031
  Transmission Date: 20070319
  Serious: Yes (Death)
  Sender: FDA-Public Use
  Company Number: 2006114276

PATIENT
  Age: 73 Year
  Sex: Female
  Weight: 89.7 kg

DRUGS (7)
  1. SUTENT [Suspect]
     Indication: LUNG NEOPLASM MALIGNANT
     Dosage: 37.5 MG (37.5 MG, 1 IN 1 D), ORAL
     Route: 048
     Dates: start: 20060922, end: 20060923
  2. DOCETAXEL              (DOCETAXEL) [Suspect]
     Indication: LUNG NEOPLASM MALIGNANT
     Dosage: 150 MG (150 MG, 1 IN 1 3 WK), INTRAVENOUS
     Route: 042
     Dates: start: 20060922, end: 20060923
  3. ALLOPURINOL [Concomitant]
  4. ATENOLOL [Concomitant]
  5. METAGLIP               (GLIPIZIDE, METFORMIN HYDROCHLORIDE) [Concomitant]
  6. NORVASC [Concomitant]
  7. MULTIVITAMIN [Concomitant]

REACTIONS (10)
  - BLOOD PRESSURE DECREASED [None]
  - CARDIO-RESPIRATORY ARREST [None]
  - CYANOSIS [None]
  - DYSPNOEA [None]
  - FLUID OVERLOAD [None]
  - LOSS OF CONSCIOUSNESS [None]
  - LUNG NEOPLASM MALIGNANT [None]
  - LYMPHANGIOSIS CARCINOMATOSA [None]
  - MALIGNANT NEOPLASM PROGRESSION [None]
  - PULMONARY HAEMORRHAGE [None]
